FAERS Safety Report 4377151-3 (Version None)
Quarter: 2004Q2

REPORT INFORMATION
  Report Type: 
  Country: None (occurrence: None)
  Receive Date: 20040614
  Receipt Date: 20040614
  Transmission Date: 20050107
  Serious: Yes (Disabling)
  Sender: FDA-Public Use
  Company Number: None

PATIENT
  Age: 50 Year
  Sex: Male
  Weight: 86.1834 kg

DRUGS (7)
  1. METRONIDAZOLE [Suspect]
     Indication: TOOTH INFECTION
     Dosage: 1 GM LOADING ORAL
     Route: 048
     Dates: start: 20040531, end: 20040531
  2. METRONIDAZOLE [Suspect]
     Indication: TOOTH INFECTION
     Dosage: 500 MG TID ORAL
     Route: 048
     Dates: start: 20040531, end: 20040604
  3. VICODIN [Concomitant]
  4. FERROUS SULFATE TAB [Concomitant]
  5. CENTRUM [Concomitant]
  6. FLONASE [Concomitant]
  7. ALEVE [Concomitant]

REACTIONS (1)
  - PARAESTHESIA [None]
